FAERS Safety Report 4423880-2 (Version None)
Quarter: 2004Q3

REPORT INFORMATION
  Report Type: 
  Country: None (occurrence: None)
  Receive Date: 20040715
  Receipt Date: 20040123
  Transmission Date: 20050211
  Serious: Yes (Hospitalization)
  Sender: FDA-Public Use
  Company Number: 2004195807US

PATIENT
  Age: 97 Year
  Sex: Male

DRUGS (2)
  1. CELEBREX [Suspect]
     Dosage: 200 MG, QD,
     Dates: end: 20030809
  2. ZOLOFT [Suspect]

REACTIONS (1)
  - GASTROINTESTINAL HAEMORRHAGE [None]
